FAERS Safety Report 9007394 (Version 1)
Quarter: 2013Q1

REPORT INFORMATION
  Report Type: Spontaneous
  Country: FR (occurrence: FR)
  Receive Date: 20130110
  Receipt Date: 20130110
  Transmission Date: 20140127
  Serious: Yes (Other)
  Sender: FDA-Public Use
  Company Number: FR-BAXTER-2013BAX000029

PATIENT
  Sex: Male
  Weight: 30 kg

DRUGS (6)
  1. HOLOXAN 2000 MG, POUDRE POUR USAGE PARENT?RAL [Suspect]
     Indication: EMBRYONAL RHABDOMYOSARCOMA
     Route: 042
     Dates: start: 20060926, end: 20070222
  2. ENDOXAN 2000 MG, LYOPHILISAT POUR SOLUTION INJECTABLE [Suspect]
     Indication: EMBRYONAL RHABDOMYOSARCOMA
     Route: 042
     Dates: start: 20070605, end: 200711
  3. NAVELBINE [Suspect]
     Indication: EMBRYONAL RHABDOMYOSARCOMA
     Route: 042
     Dates: start: 20070606, end: 200711
  4. ONCOVIN [Suspect]
     Indication: EMBRYONAL RHABDOMYOSARCOMA
     Dosage: 5/M2
     Route: 042
     Dates: start: 20060926, end: 20070307
  5. DACTINOMYCIN [Suspect]
     Indication: EMBRYONAL RHABDOMYOSARCOMA
     Route: 042
     Dates: start: 20060926, end: 20070221
  6. DOXORUBICIN [Suspect]
     Indication: EMBRYONAL RHABDOMYOSARCOMA
     Route: 042
     Dates: start: 20070131, end: 20070221

REACTIONS (1)
  - Pancreatic insufficiency [Not Recovered/Not Resolved]
